FAERS Safety Report 15590733 (Version 2)
Quarter: 2018Q4

REPORT INFORMATION
  Report Type: Spontaneous
  Country: RU (occurrence: RU)
  Receive Date: 20181106
  Receipt Date: 20181115
  Transmission Date: 20190205
  Serious: Yes (Hospitalization, Other)
  Sender: FDA-Public Use
  Company Number: RU-PFIZER INC-2018448329

PATIENT
  Age: 58 Year
  Sex: Female

DRUGS (1)
  1. DEPO-PROVERA [Suspect]
     Active Substance: MEDROXYPROGESTERONE ACETATE
     Indication: OVARIAN CANCER
     Dosage: UNK
     Route: 030
     Dates: start: 201810, end: 201810

REACTIONS (7)
  - Confusional state [Recovered/Resolved]
  - Oedema [Recovered/Resolved]
  - Jaundice [Recovered/Resolved]
  - Oesophageal haemorrhage [Not Recovered/Not Resolved]
  - Hallucination [Recovered/Resolved]
  - Encephalopathy [Recovered/Resolved]
  - Product use in unapproved indication [Unknown]

NARRATIVE: CASE EVENT DATE: 201810
